FAERS Safety Report 4696566-7 (Version None)
Quarter: 2005Q2

REPORT INFORMATION
  Report Type: 
  Country: None (occurrence: None)
  Receive Date: 20050620
  Receipt Date: 20050610
  Transmission Date: 20051028
  Serious: Yes (Hospitalization)
  Sender: FDA-Public Use
  Company Number: 2005US-00555

PATIENT
  Age: 19 Year
  Sex: Male

DRUGS (3)
  1. OFLOXACIN [Suspect]
     Indication: PERIORBITAL CELLULITIS
     Dosage: 400 MG, BID, INTRAVENOUS
     Route: 042
  2. OXACILLIN [Concomitant]
  3. LEVOFLOXACIN [Concomitant]

REACTIONS (5)
  - HEPATOSPLENOMEGALY [None]
  - HISTIOCYTOSIS HAEMATOPHAGIC [None]
  - LYMPHOPENIA [None]
  - RHABDOMYOLYSIS [None]
  - THROMBOCYTOPENIA [None]
